FAERS Safety Report 7353859-2 (Version None)
Quarter: 2011Q1

REPORT INFORMATION
  Report Type: 
  Country: None (occurrence: None)
  Receive Date: 20110315
  Receipt Date: 20110302
  Transmission Date: 20110831
  Serious: Yes (Other)
  Sender: FDA-Public Use
  Company Number: US-BAUSCH-2011BL001039

PATIENT
  Age: 80 Year
  Sex: Male

DRUGS (1)
  1. ACETIC ACID 2% IN AQUEOUS ALUMINUM ACETATE [Suspect]
     Indication: EAR DISORDER
     Route: 001
     Dates: start: 20110214

REACTIONS (3)
  - ACCIDENTAL EXPOSURE [None]
  - RETINAL ARTERY OCCLUSION [None]
  - CHROMATOPSIA [None]
